FAERS Safety Report 16672682 (Version 1)
Quarter: 2019Q3

REPORT INFORMATION
  Report Type: Spontaneous
  Country: US (occurrence: US)
  Receive Date: 20190806
  Receipt Date: 20190806
  Transmission Date: 20191004
  Serious: Yes (Death, Hospitalization, Other)
  Sender: FDA-Public Use
  Company Number: US-MYLANLABS-2019M1073089

PATIENT
  Age: 15 Year
  Sex: Female

DRUGS (4)
  1. ONDANSETRON [Concomitant]
     Active Substance: ONDANSETRON
     Route: 065
  2. CETIRIZINE [Concomitant]
     Active Substance: CETIRIZINE HYDROCHLORIDE
     Route: 065
  3. SULPHAMETHOXAZOLE/TRIMETHOPRIM [Suspect]
     Active Substance: SULFAMETHOXAZOLE\TRIMETHOPRIM
     Indication: URINARY TRACT INFECTION
     Route: 065
  4. AVIANE [Concomitant]
     Active Substance: ETHINYL ESTRADIOL\LEVONORGESTREL
     Route: 048

REACTIONS (7)
  - Acute respiratory failure [Fatal]
  - Acute respiratory distress syndrome [Fatal]
  - Pneumothorax [Fatal]
  - Pleural effusion [Fatal]
  - Pneumomediastinum [Fatal]
  - Pulmonary embolism [Fatal]
  - Eosinophilic pneumonia acute [Fatal]
